FAERS Safety Report 12159977 (Version 1)
Quarter: 2016Q1

REPORT INFORMATION
  Report Type: Spontaneous
  Country: DK (occurrence: DK)
  Receive Date: 20160308
  Receipt Date: 20160308
  Transmission Date: 20160526
  Serious: Yes (Hospitalization)
  Sender: FDA-Public Use
  Company Number: DK-TEVA-638942ISR

PATIENT
  Age: 41 Year
  Sex: Female

DRUGS (3)
  1. METHOTREXATE [Suspect]
     Active Substance: METHOTREXATE
     Indication: PSORIASIS
  2. PREDNISOLON [Concomitant]
     Active Substance: PREDNISOLONE
     Indication: ECZEMA
     Dates: start: 20131119
  3. METHOTREXATE [Suspect]
     Active Substance: METHOTREXATE
     Indication: ECZEMA
     Dosage: STRENGTH: 2,5 MG
     Dates: start: 20140612, end: 201406

REACTIONS (20)
  - Neurotoxicity [Unknown]
  - Memory impairment [Unknown]
  - Tremor [Unknown]
  - Diplopia [Unknown]
  - Visual impairment [Unknown]
  - Disturbance in attention [Unknown]
  - Hallucination [Unknown]
  - Nausea [Unknown]
  - Decreased appetite [Unknown]
  - Gastrointestinal toxicity [Unknown]
  - Vision blurred [Unknown]
  - Toxicity to various agents [Unknown]
  - Erythropenia [Unknown]
  - Muscular weakness [Unknown]
  - Balance disorder [Unknown]
  - Bone marrow failure [Unknown]
  - Dizziness [Unknown]
  - Leukopenia [Unknown]
  - Sepsis [Unknown]
  - Thrombocytopenia [Unknown]

NARRATIVE: CASE EVENT DATE: 2014
